FAERS Safety Report 7422790-6 (Version None)
Quarter: 2011Q2

REPORT INFORMATION
  Report Type: 
  Country: None (occurrence: None)
  Receive Date: 20110419
  Receipt Date: 20110411
  Transmission Date: 20111010
  Serious: Yes (Other)
  Sender: FDA-Public Use
  Company Number: US-NOVOPROD-322069

PATIENT
  Sex: Female
  Weight: 63.492 kg

DRUGS (3)
  1. SEASONIQUE [Concomitant]
     Indication: ORAL CONTRACEPTION
  2. PEPCID [Concomitant]
     Indication: PRODUCT USED FOR UNKNOWN INDICATION
  3. VICTOZA [Suspect]
     Indication: TYPE 2 DIABETES MELLITUS
     Dosage: 1.8 MG, QD
     Route: 058
     Dates: start: 20100501, end: 20110109

REACTIONS (5)
  - BILIARY DYSKINESIA [None]
  - ABDOMINAL DISTENSION [None]
  - VOMITING [None]
  - GASTRITIS [None]
  - CONSTIPATION [None]
